FAERS Safety Report 4318199-4 (Version None)
Quarter: 2004Q1

REPORT INFORMATION
  Report Type: 
  Country: None (occurrence: None)
  Receive Date: 20040315
  Receipt Date: 20040210
  Transmission Date: 20041129
  Serious: Yes (Other)
  Sender: FDA-Public Use
  Company Number: USA-2004-0012971

PATIENT
  Age: 45 Year
  Sex: Female

DRUGS (6)
  1. OXYCONTIN [Suspect]
     Indication: PAIN
     Dosage: SEE TEXT, ORAL
     Route: 048
     Dates: start: 20030501
  2. ALTACE [Concomitant]
  3. NSAID'S [Concomitant]
  4. ANTIDEPRESSANTS [Concomitant]
  5. LAXATIVES [Concomitant]
  6. MULTIVITAMIN [Concomitant]

REACTIONS (6)
  - CONDITION AGGRAVATED [None]
  - FALL [None]
  - MEDICATION ERROR [None]
  - PAIN [None]
  - TREATMENT NONCOMPLIANCE [None]
  - UPPER LIMB FRACTURE [None]
